FAERS Safety Report 18619763 (Version 4)
Quarter: 2021Q1

REPORT INFORMATION
  Report Type: Spontaneous
  Country: US (occurrence: US)
  Receive Date: 20201215
  Receipt Date: 20210209
  Transmission Date: 20210419
  Serious: No
  Sender: FDA-Public Use
  Company Number: US-PFIZER INC-2020491662

PATIENT
  Age: 63 Year
  Sex: Female

DRUGS (2)
  1. IBRANCE [Suspect]
     Active Substance: PALBOCICLIB
     Dosage: 125 MG
     Dates: start: 20201201
  2. IBRANCE [Suspect]
     Active Substance: PALBOCICLIB
     Dosage: 125 MG AT 10PM
     Dates: start: 20201207

REACTIONS (7)
  - Diarrhoea [Recovering/Resolving]
  - Nausea [Unknown]
  - Peripheral swelling [Unknown]
  - Chills [Recovered/Resolved]
  - Insomnia [Recovering/Resolving]
  - Hot flush [Unknown]
  - Stomatitis [Unknown]

NARRATIVE: CASE EVENT DATE: 202012
